FAERS Safety Report 5104162-2 (Version None)
Quarter: 2006Q3

REPORT INFORMATION
  Report Type: 
  Country: None (occurrence: None)
  Receive Date: 20060911
  Receipt Date: 20060830
  Transmission Date: 20061208
  Serious: Yes (Other)
  Sender: FDA-Public Use
  Company Number: HQWYE141730AUG06

PATIENT
  Age: 5 Year
  Sex: Male

DRUGS (3)
  1. NEOVLAR (LEVONORGESTREL/ETHINYL ESTRADIOL, TABLET) [Suspect]
     Dosage: 3 TABLETS ONE TIME ORAL
     Route: 048
     Dates: start: 20060101
  2. SALBUTAMOL (SALBUTAMOL) [Concomitant]
  3. PREDNISOLONE [Concomitant]

REACTIONS (4)
  - ACCIDENTAL DRUG INTAKE BY CHILD [None]
  - ACCIDENTAL OVERDOSE [None]
  - HAEMATEMESIS [None]
  - VOMITING [None]
